FAERS Safety Report 8320990-4 (Version None)
Quarter: 2012Q2

REPORT INFORMATION
  Report Type: 
  Country: None (occurrence: None)
  Receive Date: 20120430
  Receipt Date: 20120424
  Transmission Date: 20120825
  Serious: Yes (Death, Hospitalization, Other)
  Sender: FDA-Public Use
  Company Number: PHHY2012JP012893

PATIENT
  Sex: Female

DRUGS (11)
  1. LIPITOR [Concomitant]
     Indication: HYPERLIPIDAEMIA
     Dosage: 5 MG, UNK
     Dates: start: 20090805
  2. DILTIAZEM HCL [Concomitant]
     Indication: ANGINA PECTORIS
     Dosage: 200 MG, UNK
     Route: 048
     Dates: start: 20090805
  3. ISOSORBIDE DINITRATE [Concomitant]
     Indication: ANGINA PECTORIS
     Dosage: 10 MG, UNK
     Route: 048
     Dates: start: 20090805
  4. NEORAL [Suspect]
     Indication: MYASTHENIA GRAVIS
     Dosage: 70 MG, UNK
     Route: 048
     Dates: start: 20080305
  5. PREDNISOLONE [Suspect]
     Indication: MYASTHENIA GRAVIS
     Dosage: 17.5 MG, UNK
     Route: 048
     Dates: start: 20070906
  6. LANSOPRAZOLE [Concomitant]
     Indication: PROPHYLAXIS AGAINST GASTROINTESTINAL ULCER
     Dosage: 15 MG, UNK
     Route: 048
     Dates: start: 20090805
  7. PAZUFLOXACIN [Concomitant]
     Indication: ACUTE RESPIRATORY DISTRESS SYNDROME
     Dosage: 1000 MG, UNK
     Route: 042
     Dates: start: 20090801
  8. LASIX [Concomitant]
     Dosage: UNK UKN, UNK
  9. METHYLPREDNISOLONE [Concomitant]
     Dosage: 1000 MG, UNK
  10. SIGMART [Concomitant]
     Indication: ANGINA PECTORIS
     Dosage: 15 MG, UNK
     Route: 048
     Dates: start: 20090805
  11. ELASPOL [Concomitant]
     Indication: ACUTE RESPIRATORY DISTRESS SYNDROME
     Dosage: 250 MG, UNK
     Route: 042
     Dates: start: 20090803

REACTIONS (8)
  - BLOOD PRESSURE DECREASED [None]
  - MULTI-ORGAN FAILURE [None]
  - FUNGAL INFECTION [None]
  - IMMUNOSUPPRESSANT DRUG LEVEL INCREASED [None]
  - VOCAL CORD PARALYSIS [None]
  - GLUCOSE TOLERANCE IMPAIRED [None]
  - OLIGURIA [None]
  - ACUTE RESPIRATORY DISTRESS SYNDROME [None]
